FAERS Safety Report 7760145-5 (Version None)
Quarter: 2011Q3

REPORT INFORMATION
  Report Type: 
  Country: None (occurrence: None)
  Receive Date: 20110919
  Receipt Date: 20110914
  Transmission Date: 20111222
  Serious: Yes (Other)
  Sender: FDA-Public Use
  Company Number: US-ABBOTT-11P-163-0849335-00

PATIENT
  Sex: Female
  Weight: 103.06 kg

DRUGS (26)
  1. HUMIRA [Suspect]
     Indication: PSORIASIS
     Dates: start: 20110708
  2. VENTOLIN HFA [Concomitant]
     Indication: PRODUCT USED FOR UNKNOWN INDICATION
     Dosage: 108(90) BASE MCG/ACT 2 PUFF 4XDAY MOUTH
     Route: 055
     Dates: start: 20101019
  3. HYDROCODONE BITARTRATE AND ACETAMINOPHEN [Concomitant]
     Indication: PAIN
     Dosage: 5/500, PRN
     Route: 048
     Dates: start: 20100812
  4. NORMAL INHALER [Concomitant]
     Indication: ASTHMA
  5. CRANBERRY [Concomitant]
     Indication: PRODUCT USED FOR UNKNOWN INDICATION
     Route: 048
     Dates: start: 20110208
  6. CYMBALTA [Concomitant]
     Indication: PRODUCT USED FOR UNKNOWN INDICATION
     Dosage: DELAYED RELEASE PARTICLES
     Route: 048
     Dates: start: 20100902
  7. CYMBALTA [Concomitant]
     Indication: FIBROMYALGIA
  8. LORAZEPAM [Concomitant]
     Indication: ANXIETY
     Route: 048
     Dates: start: 20100812
  9. AMBIEN [Concomitant]
     Indication: INSOMNIA
     Dosage: AT NIGHT
     Route: 048
     Dates: start: 20110204
  10. MELOXICAM [Concomitant]
     Indication: FIBROMYALGIA
     Route: 048
     Dates: start: 20110425
  11. ALBUTEROL SULFATE [Concomitant]
     Indication: PRODUCT USED FOR UNKNOWN INDICATION
     Dosage: 2.5MG/3ML, 0.083% NEBULIZATION 1 PER 4HR
     Route: 055
     Dates: start: 20110801
  12. MIRTAZAPINE [Concomitant]
     Indication: PRODUCT USED FOR UNKNOWN INDICATION
     Dosage: AT BEDTIME
     Route: 048
     Dates: start: 20110425
  13. SOMA [Concomitant]
     Indication: PAIN
  14. PROMETHAZINE HCL [Concomitant]
     Indication: VOMITING
  15. CARISOPRODOL [Concomitant]
     Indication: PRODUCT USED FOR UNKNOWN INDICATION
     Route: 048
     Dates: start: 20100812
  16. CYMBALTA [Concomitant]
     Indication: DEPRESSION
     Dates: start: 20100902
  17. MULTIPLE CREAMS [Concomitant]
     Indication: PSORIASIS
  18. CYMBALTA [Concomitant]
     Dosage: DELAYED RELEASE PARTICLES
     Route: 048
     Dates: start: 20110208
  19. ONE-A-DAY ENERGY [Concomitant]
     Indication: PRODUCT USED FOR UNKNOWN INDICATION
     Route: 048
     Dates: start: 20110208
  20. PROMETHAZINE HCL [Concomitant]
     Indication: NAUSEA
     Dosage: 1 EVERY 8 HOURS AS NEEDED
     Route: 054
     Dates: start: 20110305
  21. LOSARTAN POTASSIUM [Concomitant]
     Indication: HYPERTENSION
     Route: 048
  22. AMLODIPINE BESYLATE [Concomitant]
     Indication: HYPERTENSION
     Route: 048
  23. LASIX [Concomitant]
     Indication: HYPERTENSION
     Route: 048
     Dates: start: 20110801
  24. INHALER SOLUTION [Concomitant]
     Indication: INHALATION THERAPY
     Route: 055
     Dates: start: 20101019
  25. SINGULAIR [Concomitant]
     Indication: PRODUCT USED FOR UNKNOWN INDICATION
     Route: 048
     Dates: start: 20100812
  26. MOMETASONE FUROATE [Concomitant]
     Indication: PRODUCT USED FOR UNKNOWN INDICATION
     Dosage: SPARINGLY TO AFFECTED AREAS 1-2 DAILY
     Route: 061
     Dates: start: 20101129

REACTIONS (6)
  - PSORIASIS [None]
  - BLOOD CHOLESTEROL INCREASED [None]
  - DRUG INEFFECTIVE [None]
  - DEPRESSION [None]
  - CARDIAC MURMUR [None]
  - DIABETES MELLITUS [None]
